FAERS Safety Report 7595223-7 (Version None)
Quarter: 2011Q3

REPORT INFORMATION
  Report Type: 
  Country: None (occurrence: None)
  Receive Date: 20110707
  Receipt Date: 20110628
  Transmission Date: 20111222
  Serious: Yes (Hospitalization)
  Sender: FDA-Public Use
  Company Number: FR-NOVOPROD-331201

PATIENT
  Age: 76 Year
  Sex: Male

DRUGS (7)
  1. PREVISCAN                          /00261401/ [Concomitant]
  2. RAMIPRIL [Concomitant]
  3. FUROSEMIDE [Concomitant]
  4. LEVEMIR [Suspect]
     Indication: PRODUCT USED FOR UNKNOWN INDICATION
     Dosage: UNK
     Route: 058
     Dates: start: 20110621, end: 20110622
  5. ASPIRIN [Concomitant]
  6. AMIODARONE HCL [Concomitant]
  7. ATORVASTATIN CALCIUM [Concomitant]

REACTIONS (2)
  - DYSPNOEA [None]
  - PRURITUS GENERALISED [None]
